FAERS Safety Report 5389355-1 (Version None)
Quarter: 2007Q3

REPORT INFORMATION
  Report Type: 
  Country: None (occurrence: None)
  Receive Date: 20070713
  Receipt Date: 20070713
  Transmission Date: 20080115
  Serious: Yes (Life-Threatening)
  Sender: FDA-Public Use
  Company Number: None

PATIENT
  Sex: Male
  Weight: 83 kg

DRUGS (3)
  1. FLUDARABINE PHOSPHATE [Suspect]
     Indication: ACUTE MYELOID LEUKAEMIA
     Dosage: 63 DAILY X 5 IV
     Route: 042
     Dates: start: 20061101, end: 20061106
  2. MELPHALAN [Suspect]
     Dosage: 294 TIMES ONE IV
     Route: 042
     Dates: start: 20061106, end: 20061106
  3. CAMPATH [Concomitant]

REACTIONS (3)
  - HYPOXIA [None]
  - PULMONARY EMBOLISM [None]
  - PYREXIA [None]
